FAERS Safety Report 7468245-4 (Version None)
Quarter: 2011Q2

REPORT INFORMATION
  Report Type: 
  Country: None (occurrence: None)
  Receive Date: 20110509
  Receipt Date: 20110428
  Transmission Date: 20111010
  Serious: Yes (Other)
  Sender: FDA-Public Use
  Company Number: AU-AMGEN-AUSSP2011013475

PATIENT
  Age: 73 Year
  Sex: Female
  Weight: 80.8 kg

DRUGS (10)
  1. XANAX [Concomitant]
     Dosage: UNK
  2. ATACAND HCT [Concomitant]
  3. VITAMIN A [Concomitant]
  4. METHOTREXATE [Concomitant]
     Dosage: 10 MG, WEEKLY
  5. MESALAMINE [Concomitant]
     Indication: COLITIS ULCERATIVE
     Dosage: UNK
  6. ACIMAX                             /00661201/ [Concomitant]
  7. FOLIC ACID [Concomitant]
     Dosage: UNK
  8. METFORMIN HCL [Concomitant]
     Dosage: UNK
  9. ENBREL [Suspect]
     Indication: PSORIASIS
     Dosage: 50 MG, WEEKLY
     Route: 058
     Dates: start: 20101116, end: 20110322
  10. LIPITOR [Concomitant]

REACTIONS (13)
  - DIZZINESS [None]
  - SKIN HAEMORRHAGE [None]
  - HEADACHE [None]
  - MALAISE [None]
  - FEELING ABNORMAL [None]
  - ANXIETY [None]
  - DRUG INEFFECTIVE [None]
  - RASH PUSTULAR [None]
  - INJECTION SITE CELLULITIS [None]
  - INJECTION SITE REACTION [None]
  - PAIN IN EXTREMITY [None]
  - NEGATIVE THOUGHTS [None]
  - NERVOUSNESS [None]
